FAERS Safety Report 8120515-2 (Version None)
Quarter: 2012Q1

REPORT INFORMATION
  Report Type: 
  Country: None (occurrence: None)
  Receive Date: 20120203
  Receipt Date: 20120125
  Transmission Date: 20120608
  Serious: No
  Sender: FDA-Public Use
  Company Number: CC-12-004

PATIENT
  Age: 60 Year
  Sex: Female
  Weight: 57.1532 kg

DRUGS (5)
  1. NIACIN [Concomitant]
  2. PLAVIX [Concomitant]
  3. FLUOXETINE [Suspect]
     Indication: DEPRESSION
     Dosage: 20 MG/5 ML - ONCE DAILY
  4. SIMVASTATIN [Concomitant]
  5. ASPIRIN [Concomitant]

REACTIONS (4)
  - ANXIETY [None]
  - PRODUCT TASTE ABNORMAL [None]
  - NAUSEA [None]
  - HEADACHE [None]
